FAERS Safety Report 8192140-9 (Version None)
Quarter: 2012Q1

REPORT INFORMATION
  Report Type: 
  Country: None (occurrence: None)
  Receive Date: 20120307
  Receipt Date: 20120229
  Transmission Date: 20120608
  Serious: Yes (Hospitalization)
  Sender: FDA-Public Use
  Company Number: FR-FRI-1000028899

PATIENT
  Sex: Female

DRUGS (3)
  1. PREVISCAN [Concomitant]
  2. CITALOPRAM HYDROBROMIDE [Suspect]
     Dosage: 20 MG
     Route: 048
     Dates: end: 20120124
  3. OXAZEPAM [Suspect]
     Dosage: 50 MG
     Route: 048
     Dates: end: 20120127

REACTIONS (4)
  - ORTHOSTATIC HYPOTENSION [None]
  - FALL [None]
  - DRUG INTERACTION [None]
  - DIZZINESS [None]
